FAERS Safety Report 8082574 (Version 2)
Quarter: 2013Q2

REPORT INFORMATION
  Report Type: Report from Study
  Country: US (occurrence: US)
  Receive Date: 20110809
  Receipt Date: 20130506
  Transmission Date: 20140414
  Serious: Yes (Hospitalization, Other)
  Sender: FDA-Public Use
  Company Number: PHHY2011US64288

PATIENT
  Age: 60 Year
  Sex: Male

DRUGS (3)
  1. GLEEVEC [Suspect]
     Indication: CHRONIC MYELOID LEUKAEMIA
     Dosage: UNK UKN, UNK
     Route: 048
     Dates: start: 2003
  2. GLEEVEC [Suspect]
     Dosage: 400 MG, DAILY
     Route: 048
     Dates: start: 20070831
  3. GLEEVEC [Suspect]
     Dosage: 400 MG, DAILY
     Route: 048

REACTIONS (11)
  - Ear infection [Unknown]
  - Dizziness [Unknown]
  - Blood triglycerides increased [Unknown]
  - Nausea [Unknown]
  - Hyperhidrosis [Unknown]
  - Retching [Unknown]
  - Muscle spasms [Unknown]
  - Vertigo [Not Recovered/Not Resolved]
  - Blood creatine phosphokinase increased [Unknown]
  - Gastrooesophageal reflux disease [Unknown]
  - Oesophagitis [Unknown]
